FAERS Safety Report 5701266-8 (Version None)
Quarter: 2008Q2

REPORT INFORMATION
  Report Type: 
  Country: None (occurrence: None)
  Receive Date: 20080407
  Receipt Date: 20080327
  Transmission Date: 20081010
  Serious: Yes (Life-Threatening)
  Sender: FDA-Public Use
  Company Number: 2008AL001946

PATIENT
  Age: 68 Year
  Sex: Male

DRUGS (2)
  1. DICLOFENAC SODIUM [Suspect]
     Indication: BACK PAIN
     Dosage: 75 MG; X1; PO
     Route: 048
     Dates: start: 20080312, end: 20080312
  2. SYMBICORT [Concomitant]

REACTIONS (1)
  - ANAPHYLACTIC SHOCK [None]
